FAERS Safety Report 14698612 (Version 1)
Quarter: 2018Q1

REPORT INFORMATION
  Report Type: Spontaneous
  Country: PL (occurrence: PL)
  Receive Date: 20180330
  Receipt Date: 20180330
  Transmission Date: 20180509
  Serious: Yes (Other)
  Sender: FDA-Public Use
  Company Number: PHHY2018PL049887

PATIENT

DRUGS (3)
  1. AMOXICILLIN + CLAVULANATE POTASSIUM [Suspect]
     Active Substance: AMOXICILLIN\CLAVULANATE POTASSIUM
     Indication: FOETAL EXPOSURE DURING PREGNANCY
     Route: 064
  2. DINOPROSTONE. [Suspect]
     Active Substance: DINOPROSTONE
     Indication: FOETAL EXPOSURE DURING PREGNANCY
     Route: 064
  3. OXYTOCIN. [Suspect]
     Active Substance: OXYTOCIN
     Indication: FOETAL EXPOSURE DURING PREGNANCY
     Route: 064

REACTIONS (2)
  - Apgar score low [Unknown]
  - Foetal exposure during pregnancy [Unknown]
